FAERS Safety Report 9876854 (Version 2)
Quarter: 2014Q1

REPORT INFORMATION
  Report Type: Other
  Country: US (occurrence: US)
  Receive Date: 20140206
  Receipt Date: 20140206
  Transmission Date: 20141002
  Serious: No
  Sender: FDA-Public Use
  Company Number: US-ACORDA-ACO_35517_2013

PATIENT
  Age: 69 Year
  Sex: Female
  Weight: 57.6 kg

DRUGS (11)
  1. AMPYRA [Suspect]
     Indication: GAIT DISTURBANCE
     Dosage: 10 MG, Q 12 HRS
  2. AMPYRA [Suspect]
     Dosage: 10 MG, Q 12 HRS
     Route: 048
     Dates: start: 20130413
  3. SOLUMEDROL [Concomitant]
     Indication: PRODUCT USED FOR UNKNOWN INDICATION
     Dosage: 1000 MG, QD
     Route: 042
     Dates: start: 20130210, end: 20130214
  4. QUINAPRIL [Concomitant]
     Indication: PRODUCT USED FOR UNKNOWN INDICATION
     Dosage: UNK
  5. ASPIRIN [Concomitant]
     Indication: PROPHYLAXIS
     Dosage: 325 MG, UNK
  6. GABAPENTIN [Concomitant]
     Indication: POST HERPETIC NEURALGIA
     Dosage: UNK
     Dates: start: 20120429
  7. VITAMIN D [Concomitant]
     Indication: PRODUCT USED FOR UNKNOWN INDICATION
     Dosage: UNK
  8. VITAMIN B12 [Concomitant]
     Indication: PRODUCT USED FOR UNKNOWN INDICATION
     Dosage: UNK
  9. KLONOPIN [Concomitant]
     Indication: PRODUCT USED FOR UNKNOWN INDICATION
     Dosage: 0.5 MG, QD AT BEDTIME
     Dates: start: 201112
  10. AMANTADINE [Concomitant]
     Indication: PRODUCT USED FOR UNKNOWN INDICATION
     Dosage: UNK
  11. FOLIC ACID [Concomitant]
     Indication: PRODUCT USED FOR UNKNOWN INDICATION
     Dosage: UNK

REACTIONS (6)
  - Cough [Recovering/Resolving]
  - Initial insomnia [Not Recovered/Not Resolved]
  - Gait disturbance [Unknown]
  - Nasopharyngitis [Recovered/Resolved]
  - Headache [Recovered/Resolved]
  - Nasopharyngitis [Recovering/Resolving]
